FAERS Safety Report 4430599-0 (Version None)
Quarter: 2004Q3

REPORT INFORMATION
  Report Type: 
  Country: None (occurrence: None)
  Receive Date: 20040818
  Receipt Date: 20040805
  Transmission Date: 20050211
  Serious: Yes (Other)
  Sender: FDA-Public Use
  Company Number: 2004052851

PATIENT
  Age: 65 Year
  Sex: Female

DRUGS (3)
  1. LIPITOR [Suspect]
     Indication: HYPERLIPIDAEMIA
     Dosage: 10 MG (10 MG, 1 IN 1 D), ORAL
     Route: 048
     Dates: start: 20031225, end: 20040726
  2. LOSARTAN POTASSIUM [Concomitant]
  3. CLOTIAZEPAM (CLOTIAZEPAM) [Concomitant]

REACTIONS (7)
  - ANOREXIA [None]
  - BLOOD CREATINE PHOSPHOKINASE INCREASED [None]
  - DIARRHOEA [None]
  - MUSCLE CRAMP [None]
  - MYALGIA [None]
  - PYREXIA [None]
  - URINARY OCCULT BLOOD POSITIVE [None]
